FAERS Safety Report 5152372-0 (Version None)
Quarter: 2006Q4

REPORT INFORMATION
  Report Type: 
  Country: None (occurrence: None)
  Receive Date: 20061116
  Receipt Date: 20061018
  Transmission Date: 20070319
  Serious: Yes (Hospitalization)
  Sender: FDA-Public Use
  Company Number: GB-ELI_LILLY_AND_COMPANY-GB200610003289

PATIENT
  Age: 71 Year
  Sex: Female
  Weight: 73 kg

DRUGS (11)
  1. LOSARTAN POSTASSIUM [Concomitant]
     Indication: BLOOD PRESSURE
     Dosage: 100 MG, DAILY (1/D)
  2. FLIXONASE [Concomitant]
     Indication: RHINITIS
     Dosage: 1 D/F, DAILY (1/D)
     Route: 045
  3. FLIXONASE [Concomitant]
     Dosage: 1 D/F, 2/D
     Route: 045
  4. OMEPRAZOLE [Concomitant]
     Indication: GASTROOESOPHAGEAL REFLUX DISEASE
     Dosage: 20 MG, DAILY (1/D)
  5. STRONTIUM RANELATE [Concomitant]
     Dosage: 2 G, EACH EVENING
     Route: 048
  6. SYMBICORT TURBUHALER ^ASTRAZENECA^ [Concomitant]
     Indication: ASTHMA
     Dosage: 2 D/F, 2/D
     Route: 055
  7. QUININE SULFATE [Concomitant]
     Indication: MUSCLE SPASMS
     Dosage: 300 MG, EACH EVENING
     Route: 048
  8. FEXOFENADINE [Concomitant]
     Indication: RHINITIS
     Dosage: 120 MG, DAILY (1/D)
     Route: 048
  9. ACETAMINOPHEN W/ CODEINE [Concomitant]
     Indication: PAIN
  10. CIPROFLOXACIN [Concomitant]
  11. YENTREVE [Suspect]
     Indication: STRESS URINARY INCONTINENCE
     Dosage: 20 MG, UNKNOWN
     Route: 048
     Dates: start: 20061016, end: 20061017

REACTIONS (5)
  - DIZZINESS [None]
  - HEADACHE [None]
  - HYPERTENSION [None]
  - NECK PAIN [None]
  - SOMNOLENCE [None]
